FAERS Safety Report 10642461 (Version 1)
Quarter: 2014Q4

REPORT INFORMATION
  Report Type: Spontaneous
  Country: US (occurrence: None)
  Receive Date: 20141208
  Receipt Date: 20141208
  Transmission Date: 20150529
  Serious: No
  Sender: FDA-Public Use
  Company Number: None

PATIENT
  Age: 26 Year
  Sex: Female

DRUGS (1)
  1. NEXPLANON [Suspect]
     Active Substance: ETONOGESTREL
     Indication: CONTRACEPTION
     Dosage: GIVEN INTO/UNDER THE SKIN
     Dates: start: 20140620, end: 20140708

REACTIONS (8)
  - Mood altered [None]
  - Depression [None]
  - Headache [None]
  - Medical device pain [None]
  - Nausea [None]
  - Dizziness [None]
  - Dysgeusia [None]
  - Fatigue [None]

NARRATIVE: CASE EVENT DATE: 20140620
